FAERS Safety Report 8204911-0 (Version None)
Quarter: 2012Q1

REPORT INFORMATION
  Report Type: 
  Country: None (occurrence: None)
  Receive Date: 20120313
  Receipt Date: 20120312
  Transmission Date: 20120608
  Serious: Yes (Other)
  Sender: FDA-Public Use
  Company Number: IL-BAYER-2012-024152

PATIENT
  Age: 45 Year
  Sex: Female

DRUGS (1)
  1. INTERFERON BETA-1B [Suspect]
     Dosage: 250 ?G, UNK
     Route: 058
     Dates: start: 20011002

REACTIONS (3)
  - ABSCESS [None]
  - INJECTION SITE PAIN [None]
  - INJECTION SITE MASS [None]
